FAERS Safety Report 8638714 (Version 2)
Quarter: 2012Q4

REPORT INFORMATION
  Report Type: 
  Country: US (occurrence: US)
  Receive Date: 20120627
  Receipt Date: 20120917
  Transmission Date: 20130627
  Serious: Yes (Hospitalization)
  Sender: FDA-Public Use
  Company Number: US-BAYER-2012-062354

PATIENT
  Age: 39 Year
  Sex: Female
  Weight: 56 kg

DRUGS (9)
  1. YAZ [Suspect]
     Indication: CONTRACEPTION
     Dosage: UNK
     Dates: start: 2007, end: 2012
  2. YAZ [Suspect]
     Indication: PREMENSTRUAL SYNDROME
  3. YAZ [Suspect]
     Indication: MENSTRUAL CYCLE MANAGEMENT
  4. STATIN [Concomitant]
  5. POTASSIUM [Concomitant]
     Indication: HYPOKALAEMIA
  6. CRESTOR [Concomitant]
  7. B12-VITAMIIN [Concomitant]
     Indication: VITAMIN SUPPLEMENTATION
     Dosage: UNK
     Dates: start: 2011, end: 2012
  8. VITAMIN D3 [Concomitant]
     Indication: VITAMIN SUPPLEMENTATION
     Dosage: UNK
     Dates: start: 2011, end: 2012
  9. FLINTSTONES MULTIPLE VITAMINS [Concomitant]
     Indication: VITAMIN SUPPLEMENTATION
     Dosage: UNK
     Dates: start: 2011, end: 2012

REACTIONS (5)
  - Thrombotic stroke [None]
  - Cognitive disorder [None]
  - Aphasia [None]
  - Injury [None]
  - Pain [None]
